FAERS Safety Report 9308195 (Version 2)
Quarter: 2013Q3

REPORT INFORMATION
  Report Type: Spontaneous
  Country: US (occurrence: US)
  Receive Date: 20130524
  Receipt Date: 20130715
  Transmission Date: 20140515
  Serious: No
  Sender: FDA-Public Use
  Company Number: US-009507513-1305USA008329

PATIENT
  Age: 42 Year
  Sex: Female
  Weight: 116.1 kg

DRUGS (4)
  1. NEXPLANON [Suspect]
     Indication: CONTRACEPTION
     Dosage: UNK
     Route: 059
     Dates: start: 20120629, end: 20130628
  2. CENTRUM (MINERALS (UNSPECIFIED) (+) VITAMINS (UNSPECIFIED)) [Concomitant]
  3. HYDROCHLOROTHIAZIDE [Concomitant]
  4. BIOTIN [Concomitant]
     Indication: ALOPECIA

REACTIONS (8)
  - Blood potassium decreased [Unknown]
  - Coital bleeding [Unknown]
  - Metrorrhagia [Unknown]
  - Polymenorrhoea [Unknown]
  - Urinary tract infection [Unknown]
  - Alopecia [Unknown]
  - Metrorrhagia [Unknown]
  - Vaginal infection [Unknown]
